FAERS Safety Report 7450398-5 (Version None)
Quarter: 2011Q2

REPORT INFORMATION
  Report Type: 
  Country: None (occurrence: None)
  Receive Date: 20110429
  Receipt Date: 20110429
  Transmission Date: 20111010
  Serious: Yes (Life-Threatening, Hospitalization)
  Sender: FDA-Public Use
  Company Number: None

PATIENT
  Age: 84 Year
  Sex: Male

DRUGS (9)
  1. ATENOLOL [Concomitant]
  2. ISOSORB [Concomitant]
  3. COZAAR [Concomitant]
  4. GEMFIBROZIL [Concomitant]
  5. AMLODIPINE BESYLATE [Concomitant]
  6. GLYBURIDE [Suspect]
     Indication: DIABETES MELLITUS
     Dosage: 2.5 MG ONCE A DAY PO
     Route: 048
  7. FUROSEMIDE [Suspect]
     Indication: CARDIAC FAILURE CONGESTIVE
     Dosage: 40 MG ONCE A DAY PO
     Route: 048
  8. ASPIRIN [Concomitant]
  9. HYDRALAZINE HCL [Concomitant]

REACTIONS (5)
  - BLOOD GLUCOSE DECREASED [None]
  - GASTROINTESTINAL HAEMORRHAGE [None]
  - LOSS OF CONSCIOUSNESS [None]
  - RENAL FAILURE [None]
  - CARDIAC FAILURE CONGESTIVE [None]
